FAERS Safety Report 8125109-0 (Version None)
Quarter: 2012Q1

REPORT INFORMATION
  Report Type: 
  Country: None (occurrence: None)
  Receive Date: 20120209
  Receipt Date: 20120131
  Transmission Date: 20120608
  Serious: Yes (Congenital Anomaly, Other)
  Sender: FDA-Public Use
  Company Number: DE-BRISTOL-MYERS SQUIBB COMPANY-16387888

PATIENT
  Age: 12 Week
  Sex: Male
  Weight: 3 kg

DRUGS (2)
  1. ABILIFY [Suspect]
     Route: 064
     Dates: start: 20110101
  2. FOLIC ACID [Concomitant]
     Route: 064
     Dates: start: 20110302

REACTIONS (1)
  - UMBILICAL HERNIA [None]
